FAERS Safety Report 6276523-X (Version None)
Quarter: 2009Q3

REPORT INFORMATION
  Report Type: 
  Country: None (occurrence: None)
  Receive Date: 20090722
  Receipt Date: 20090713
  Transmission Date: 20100115
  Serious: Yes (Hospitalization)
  Sender: FDA-Public Use
  Company Number: US-ALEXION-A200900565

PATIENT
  Sex: Male

DRUGS (8)
  1. SOLIRIS [Suspect]
     Dosage: 600 MG, QW X 4
     Route: 042
     Dates: start: 20080814
  2. SOLIRIS [Suspect]
     Dosage: 900 MG, Q2W
     Route: 042
     Dates: start: 20080911
  3. CYCLOSPORINE [Concomitant]
     Indication: APLASTIC ANAEMIA
     Dosage: 25 MG, 2 TABS MORNING AND 6 TABS EVENING
  4. PENTOXIFYLLINE [Concomitant]
     Indication: APLASTIC ANAEMIA
     Dosage: 400 MG, QD
     Route: 048
  5. PRILOSEC [Concomitant]
     Dosage: 20 MG, QD
  6. GABAPENTIN [Concomitant]
     Dosage: 300 MG, TID
  7. FOLIC ACID [Concomitant]
     Dosage: UNK
  8. TYLENOL (CAPLET) [Concomitant]
     Dosage: 650 MG, 6 HOURS/PRN

REACTIONS (4)
  - COUGH [None]
  - FATIGUE [None]
  - HEPATIC INFECTION [None]
  - PYREXIA [None]
